FAERS Safety Report 4606362-4 (Version None)
Quarter: 2005Q2

REPORT INFORMATION
  Report Type: 
  Country: None (occurrence: None)
  Receive Date: 20050303
  Receipt Date: 20050116
  Transmission Date: 20051028
  Serious: No
  Sender: FDA-Public Use
  Company Number: 200510078BWH

PATIENT
  Age: 35 Year
  Sex: Male
  Weight: 76.6579 kg

DRUGS (7)
  1. LEVITRA [Suspect]
     Indication: ERECTILE DYSFUNCTION
     Dosage: 10 MG, TOTAL DAILY, ORAL
     Route: 048
     Dates: start: 20050106
  2. TYLENOL (CAPLET) [Concomitant]
  3. VIAGRA [Concomitant]
  4. LIPITOR [Concomitant]
  5. CELLCEPT [Concomitant]
  6. ACCUPRIL [Concomitant]
  7. PROGRAF [Concomitant]

REACTIONS (1)
  - HEART RATE INCREASED [None]
